FAERS Safety Report 10462988 (Version 4)
Quarter: 2015Q1

REPORT INFORMATION
  Report Type: Spontaneous
  Country: US (occurrence: US)
  Receive Date: 20140919
  Receipt Date: 20150309
  Transmission Date: 20150720
  Serious: Yes (Death)
  Sender: FDA-Public Use
  Company Number: US-ROCHE-1463848

PATIENT
  Age: 56 Year
  Sex: Female

DRUGS (4)
  1. HERCEPTIN [Suspect]
     Active Substance: TRASTUZUMAB
     Indication: HER-2 POSITIVE BREAST CANCER
     Dosage: LAST CYCLE PRIOR TO SAE WAS ON 18/FEB/2014
     Route: 042
     Dates: start: 20140128
  2. CARBOPLATIN. [Concomitant]
     Active Substance: CARBOPLATIN
     Indication: HER-2 POSITIVE BREAST CANCER
  3. DOCETAXEL. [Concomitant]
     Active Substance: DOCETAXEL
     Indication: HER-2 POSITIVE BREAST CANCER
     Route: 065
  4. PERJETA [Suspect]
     Active Substance: PERTUZUMAB
     Indication: HER-2 POSITIVE BREAST CANCER
     Dosage: LAST CYCLE PRIOR TO SAE WAS ON 18/FEB/2014
     Route: 042
     Dates: start: 20140128

REACTIONS (4)
  - Staphylococcal sepsis [Fatal]
  - Cellulitis [Fatal]
  - Folliculitis [Fatal]
  - Abscess [Fatal]

NARRATIVE: CASE EVENT DATE: 20140225
